FAERS Safety Report 17277297 (Version 2)
Quarter: 2020Q1

REPORT INFORMATION
  Report Type: Spontaneous
  Country: US (occurrence: US)
  Receive Date: 20200116
  Receipt Date: 20200122
  Transmission Date: 20200409
  Serious: Yes (Death, Hospitalization)
  Sender: FDA-Public Use
  Company Number: US-PFIZER INC-2020018191

PATIENT
  Age: 34 Year
  Sex: Male

DRUGS (2)
  1. KETAMINE HCL [Suspect]
     Active Substance: KETAMINE HYDROCHLORIDE
     Dosage: UNK (INHALATION)
     Route: 055
  2. NORKETAMINE [Suspect]
     Active Substance: NORKETAMINE
     Dosage: UNK (INHALATION)
     Route: 055

REACTIONS (4)
  - Brain oedema [Fatal]
  - Cardiac arrest [Fatal]
  - Drug abuse [Fatal]
  - Soft tissue haemorrhage [Fatal]

NARRATIVE: CASE EVENT DATE: 2018
